FAERS Safety Report 25268762 (Version 1)
Quarter: 2025Q2

REPORT INFORMATION
  Report Type: Other
  Country: PR (occurrence: PR)
  Receive Date: 20250505
  Receipt Date: 20250505
  Transmission Date: 20250716
  Serious: Yes (Death, Other)
  Sender: B BRAUN
  Company Number: PR-B.Braun Medical Inc.-2176161

PATIENT
  Age: 47 Year
  Sex: Female

DRUGS (3)
  1. CEFEPIME HYDROCHLORIDE [Suspect]
     Active Substance: CEFEPIME HYDROCHLORIDE
     Indication: Abscess
  2. VANCOMYCIN [Suspect]
     Active Substance: VANCOMYCIN
  3. LEVOFLOXACIN [Suspect]
     Active Substance: LEVOFLOXACIN

REACTIONS (2)
  - Liver injury [Fatal]
  - Rash morbilliform [Unknown]
